FAERS Safety Report 4392660-9 (Version None)
Quarter: 2004Q3

REPORT INFORMATION
  Report Type: 
  Country: None (occurrence: None)
  Receive Date: 20040708
  Receipt Date: 20040625
  Transmission Date: 20050211
  Serious: Yes (Hospitalization)
  Sender: FDA-Public Use
  Company Number: PHNU2004DE02276

PATIENT
  Sex: Male

DRUGS (5)
  1. LEPONEX / CLOZARIL (CLOZAPINE) [Suspect]
     Indication: SCHIZOPHRENIA
     Dosage: 50MG/DAY
     Route: 048
     Dates: start: 20040217, end: 20040217
  2. LEPONEX / CLOZARIL (CLOZAPINE) [Suspect]
     Dosage: 75MG/DAY
     Route: 048
     Dates: start: 20040218, end: 20040218
  3. LEPONEX / CLOZARIL (CLOZAPINE) [Suspect]
     Dosage: 100MG/DAY
     Route: 048
     Dates: start: 20040219, end: 20040222
  4. LEPONEX / CLOZARIL (CLOZAPINE) [Suspect]
     Dosage: 125MG/DAY
     Route: 048
     Dates: start: 20040223, end: 20040223
  5. PANTOZOL [Concomitant]
     Dosage: 40MG/DAY
     Route: 048
     Dates: start: 20040217

REACTIONS (12)
  - ABDOMINAL PAIN [None]
  - ALANINE AMINOTRANSFERASE INCREASED [None]
  - ASPARTATE AMINOTRANSFERASE INCREASED [None]
  - BLOOD AMYLASE INCREASED [None]
  - C-REACTIVE PROTEIN INCREASED [None]
  - GAMMA-GLUTAMYLTRANSFERASE INCREASED [None]
  - HEPATIC ENZYME INCREASED [None]
  - LEUKOCYTOSIS [None]
  - LIPASE INCREASED [None]
  - NAUSEA [None]
  - PANCREATITIS [None]
  - VOMITING [None]
